FAERS Safety Report 4431723-6 (Version None)
Quarter: 2004Q3

REPORT INFORMATION
  Report Type: 
  Country: None (occurrence: None)
  Receive Date: 20040818
  Receipt Date: 20040802
  Transmission Date: 20050211
  Serious: Yes (Hospitalization)
  Sender: FDA-Public Use
  Company Number: 193267

PATIENT
  Age: 45 Year
  Sex: Female

DRUGS (7)
  1. AVONEX [Suspect]
     Indication: MULTIPLE SCLEROSIS
     Dosage: 30 MCG QW IM
     Route: 030
     Dates: start: 19960801
  2. BACLOFEN [Concomitant]
  3. VERAPAMIL [Concomitant]
  4. XANAX [Concomitant]
  5. PROZAC [Concomitant]
  6. LIPITOR [Concomitant]
  7. LANOXIN [Concomitant]

REACTIONS (1)
  - ASTHENIA [None]
